FAERS Safety Report 5659105-X (Version None)
Quarter: 2008Q1

REPORT INFORMATION
  Report Type: 
  Country: None (occurrence: None)
  Receive Date: 20080219
  Receipt Date: 20071029
  Transmission Date: 20080703
  Serious: No
  Sender: FDA-Public Use
  Company Number: WAES 0709USA01325

PATIENT
  Age: 65 Year
  Sex: Male
  Weight: 99.3377 kg

DRUGS (5)
  1. JANUVIA [Suspect]
     Indication: TYPE 2 DIABETES MELLITUS
     Dosage: 100 MG/DAILY/PO
     Route: 048
     Dates: start: 20070410, end: 20070907
  2. JANUMET [Suspect]
     Dosage: 100/50 MG/PO
     Route: 048
  3. BENICAR [Concomitant]
  4. ZOCOR [Concomitant]
  5. METFORMIN HCL [Concomitant]

REACTIONS (2)
  - GASTRIC DISORDER [None]
  - MEDICATION ERROR [None]
